FAERS Safety Report 23366752 (Version 2)
Quarter: 2024Q1

REPORT INFORMATION
  Report Type: Report from Study
  Country: US (occurrence: US)
  Receive Date: 20240104
  Receipt Date: 20240206
  Transmission Date: 20240410
  Serious: No
  Sender: FDA-Public Use
  Company Number: US-AstraZeneca-CH-00537970A

PATIENT
  Sex: Male

DRUGS (1)
  1. STRENSIQ [Suspect]
     Active Substance: ASFOTASE ALFA
     Indication: Product used for unknown indication
     Dosage: UNK
     Route: 065

REACTIONS (11)
  - Injection site pain [Unknown]
  - Arthralgia [Unknown]
  - Abdominal pain upper [Unknown]
  - Headache [Unknown]
  - Somnolence [Unknown]
  - Abdominal distension [Recovering/Resolving]
  - Chest discomfort [Unknown]
  - Dyspnoea [Unknown]
  - Fatigue [Unknown]
  - Asthenia [Unknown]
  - Musculoskeletal stiffness [Recovering/Resolving]
